FAERS Safety Report 20225477 (Version 1)
Quarter: 2021Q4

REPORT INFORMATION
  Report Type: Spontaneous
  Country: CN (occurrence: None)
  Receive Date: 20211224
  Receipt Date: 20211224
  Transmission Date: 20220303
  Serious: Yes (Other)
  Sender: FDA-Public Use
  Company Number: CN-ROCHE-2986956

PATIENT
  Age: 64 Year
  Sex: Male

DRUGS (7)
  1. AVASTIN [Suspect]
     Active Substance: BEVACIZUMAB
     Indication: Colon cancer metastatic
     Dosage: 04-JUN-2020 TO 27-JUN-2020,19-JUL-2020 TO 09-AUG-2020,30-AUG-2020 TO 20-SEP-2020
     Route: 065
  2. AVASTIN [Suspect]
     Active Substance: BEVACIZUMAB
     Dosage: 10-MAR-2021 TO 10-APR-2021, 26-APR-2021 TO 26-MAY-2021
     Route: 065
  3. AVASTIN [Suspect]
     Active Substance: BEVACIZUMAB
     Dosage: 20-JUN-2021 TO 08-JUL-2021, 01-AUG-2021 TO 24-AUG-2021
     Route: 065
  4. CAPECITABINE [Concomitant]
     Active Substance: CAPECITABINE
     Indication: Colon cancer metastatic
     Dosage: 04-JUN-2020 TO 27-JUN-2020,19-JUL-2020 TO 09-AUG-2020,30-AUG-2020 TO 20-SEP-2020
  5. CAPECITABINE [Concomitant]
     Active Substance: CAPECITABINE
     Dates: start: 20201011, end: 20210103
  6. OXALIPLATIN [Concomitant]
     Active Substance: OXALIPLATIN
     Indication: Colon cancer metastatic
     Dosage: 04-JUN-2020 TO 27-JUN-2020,19-JUL-2020 TO 09-AUG-2020,30-AUG-2020 TO 20-SEP-2020
  7. IRINOTECAN [Concomitant]
     Active Substance: IRINOTECAN
     Indication: Colon cancer metastatic
     Dosage: 10-MAR-2021 TO 10-APR-2021, 26-APR-2021 TO 26-MAY-2021

REACTIONS (1)
  - Myelosuppression [Unknown]
